FAERS Safety Report 5902581-5 (Version None)
Quarter: 2008Q3

REPORT INFORMATION
  Report Type: 
  Country: None (occurrence: None)
  Receive Date: 20080924
  Receipt Date: 20080910
  Transmission Date: 20090109
  Serious: Yes (Other)
  Sender: FDA-Public Use
  Company Number: 2008077022

PATIENT
  Age: 26 Year
  Sex: Female
  Weight: 66 kg

DRUGS (2)
  1. FRAGMIN [Suspect]
     Indication: PELVIC VENOUS THROMBOSIS
     Dosage: 5000 I.U. (5000 I.U., 1 IN 1 D) ,SUBCUTANEOUS
     Route: 058
     Dates: start: 20080606, end: 20080710
  2. FRAGMIN [Suspect]
     Indication: PREGNANCY
     Dosage: 5000 I.U. (5000 I.U., 1 IN 1 D) ,SUBCUTANEOUS
     Route: 058
     Dates: start: 20080606, end: 20080710

REACTIONS (5)
  - ABORTION [None]
  - BLOOD FIBRINOGEN INCREASED [None]
  - DRUG EXPOSURE DURING PREGNANCY [None]
  - PREGNANCY [None]
  - PROTHROMBIN TIME PROLONGED [None]
